FAERS Safety Report 25391342 (Version 1)
Quarter: 2025Q2

REPORT INFORMATION
  Report Type: Report from Study
  Country: MX (occurrence: MX)
  Receive Date: 20250603
  Receipt Date: 20250603
  Transmission Date: 20250716
  Serious: Yes (Hospitalization)
  Sender: ALEXION PHARMACEUTICALS
  Company Number: MX-AstraZeneca-CH-00844926A

PATIENT
  Age: 74 Year
  Weight: 53 kg

DRUGS (1)
  1. DURVALUMAB [Suspect]
     Active Substance: DURVALUMAB
     Indication: Hepatic neoplasm
     Dosage: 1500 MILLIGRAM, Q4W

REACTIONS (9)
  - Pruritus [Recovered/Resolved]
  - Nausea [Recovered/Resolved]
  - Constipation [Recovered/Resolved]
  - Petechiae [Unknown]
  - Adverse drug reaction [Recovered/Resolved]
  - Hepatitis [Recovered/Resolved]
  - Fluid retention [Recovered/Resolved]
  - Fatigue [Recovered/Resolved]
  - Apathy [Recovered/Resolved]
